FAERS Safety Report 17652817 (Version 1)
Quarter: 2020Q2

REPORT INFORMATION
  Report Type: Spontaneous
  Country: CO (occurrence: CO)
  Receive Date: 20200409
  Receipt Date: 20200409
  Transmission Date: 20200713
  Serious: Yes (Other)
  Sender: FDA-Public Use
  Company Number: CO-BIOMARINAP-CO-2020-129555

PATIENT
  Age: 9 Year
  Sex: Female

DRUGS (1)
  1. NAGLAZYME [Suspect]
     Active Substance: GALSULFASE
     Indication: MUCOPOLYSACCHARIDOSIS VI
     Route: 042

REACTIONS (5)
  - Hypoacusis [Unknown]
  - Mobility decreased [Unknown]
  - Upper respiratory tract infection [Unknown]
  - Spinal cord compression [Unknown]
  - Visual impairment [Unknown]
